FAERS Safety Report 14267548 (Version 4)
Quarter: 2020Q2

REPORT INFORMATION
  Report Type: Spontaneous
  Country: NL (occurrence: NL)
  Receive Date: 20171211
  Receipt Date: 20200527
  Transmission Date: 20200713
  Serious: Yes (Hospitalization, Disabling, Other)
  Sender: FDA-Public Use
  Company Number: NL-AUROBINDO-AUR-APL-2017-45172

PATIENT
  Age: 61 Year
  Sex: Female

DRUGS (3)
  1. ANASTROZOLE. [Concomitant]
     Active Substance: ANASTROZOLE
     Indication: BREAST CANCER
     Dosage: UNK
     Route: 065
  2. ZOLEDRONIC ACID [Suspect]
     Active Substance: ZOLEDRONIC ACID
     Indication: BREAST CANCER
     Dosage: UNK
     Route: 042
  3. IMMUNGLOBULIN [Concomitant]
     Active Substance: HUMAN IMMUNOGLOBULIN G
     Indication: CHRONIC INFLAMMATORY DEMYELINATING POLYRADICULONEUROPATHY
     Dosage: UNK, EVENRY 3 WEEK
     Route: 042

REACTIONS (21)
  - Gait disturbance [Recovering/Resolving]
  - Monoparesis [Recovering/Resolving]
  - Walking disability [Recovering/Resolving]
  - Chills [Recovered/Resolved]
  - Romberg test positive [Unknown]
  - Disease recurrence [Recovering/Resolving]
  - Myalgia [Recovered/Resolved]
  - Sleep disorder [Unknown]
  - Acute phase reaction [Recovered/Resolved]
  - Paraesthesia [Unknown]
  - Mobility decreased [Recovering/Resolving]
  - C-reactive protein increased [Recovered/Resolved]
  - Nasopharyngitis [Recovered/Resolved]
  - Off label use [Unknown]
  - Chronic inflammatory demyelinating polyradiculoneuropathy [Recovering/Resolving]
  - Headache [Recovered/Resolved]
  - Fatigue [Recovered/Resolved]
  - Decreased vibratory sense [Recovering/Resolving]
  - Dysaesthesia [Not Recovered/Not Resolved]
  - Red blood cell sedimentation rate increased [Recovered/Resolved]
  - Areflexia [Recovering/Resolving]
